FAERS Safety Report 4427487-2 (Version None)
Quarter: 2004Q3

REPORT INFORMATION
  Report Type: 
  Country: None (occurrence: None)
  Receive Date: 20040812
  Receipt Date: 20040802
  Transmission Date: 20050211
  Serious: Yes (Disabling, Other)
  Sender: FDA-Public Use
  Company Number: 2004226575US

PATIENT
  Age: 93 Year
  Sex: Female
  Weight: 65.8 kg

DRUGS (4)
  1. XALATAN [Suspect]
     Indication: GLAUCOMA
     Dosage: 1.5 UG, EACH EYE, HS, OPHTHALMIC
     Route: 047
  2. LASIX [Concomitant]
  3. SALT TABLETS [Concomitant]
  4. ASPIRIN [Concomitant]

REACTIONS (14)
  - BLINDNESS UNILATERAL [None]
  - BLOOD POTASSIUM ABNORMAL [None]
  - BLOOD SODIUM ABNORMAL [None]
  - BLOOD UREA INCREASED [None]
  - BRADYPHRENIA [None]
  - CONFUSIONAL STATE [None]
  - DISORIENTATION [None]
  - FEAR [None]
  - HALLUCINATION [None]
  - HYPOTENSION [None]
  - MENTAL STATUS CHANGES [None]
  - RENAL DISORDER [None]
  - SWELLING [None]
  - VISUAL ACUITY REDUCED [None]
